FAERS Safety Report 19084515 (Version 1)
Quarter: 2021Q2

REPORT INFORMATION
  Report Type: Spontaneous
  Country: US (occurrence: US)
  Receive Date: 20210401
  Receipt Date: 20210401
  Transmission Date: 20210717
  Serious: No
  Sender: FDA-Public Use
  Company Number: US-MYLANLABS-2021M1018163

PATIENT
  Sex: Female

DRUGS (1)
  1. MIRTAZAPINE TABLETS, USP [Suspect]
     Active Substance: MIRTAZAPINE
     Indication: PRODUCT USED FOR UNKNOWN INDICATION
     Dosage: 7.5 MILLIGRAM, QD
     Route: 048
     Dates: start: 20210301

REACTIONS (2)
  - Wrong technique in product usage process [Unknown]
  - Incorrect dose administered [Not Recovered/Not Resolved]
